FAERS Safety Report 5688732-9 (Version None)
Quarter: 2008Q1

REPORT INFORMATION
  Report Type: 
  Country: None (occurrence: None)
  Receive Date: 20080331
  Receipt Date: 20080325
  Transmission Date: 20080703
  Serious: Yes (Disabling)
  Sender: FDA-Public Use
  Company Number: FI-MERCK-0803FIN00005

PATIENT
  Age: 67 Year
  Sex: Female

DRUGS (2)
  1. ZETIA [Suspect]
     Indication: HYPERCHOLESTEROLAEMIA
     Route: 048
     Dates: start: 20080105, end: 20080201
  2. PROGYNOVA [Concomitant]
     Indication: OESTROGEN REPLACEMENT THERAPY
     Route: 048
     Dates: start: 19980101

REACTIONS (7)
  - DEPRESSION [None]
  - DRY EYE [None]
  - FATIGUE [None]
  - INSOMNIA [None]
  - IRRITABILITY [None]
  - MUSCULAR WEAKNESS [None]
  - NASAL DRYNESS [None]
